FAERS Safety Report 18473053 (Version 1)
Quarter: 2020Q4

REPORT INFORMATION
  Report Type: Report from Study
  Country: None (occurrence: GR)
  Receive Date: 20201106
  Receipt Date: 20201106
  Transmission Date: 20210114
  Serious: Yes (Death, Hospitalization)
  Sender: FDA-Public Use
  Company Number: GR-ABBVIE-20K-066-3639941-00

PATIENT
  Age: 75 Year
  Sex: Male
  Weight: 75 kg

DRUGS (5)
  1. DUODOPA [Suspect]
     Active Substance: CARBIDOPA\LEVODOPA
     Indication: PARKINSON^S DISEASE
     Dosage: MORNING DOSE: 7.2 ML; CONTINUOUS RATE: 1.7 ML/H; EXTRA DOSE: 1.2 ML
     Route: 050
     Dates: start: 20190507
  2. SYMMETREL [Concomitant]
     Active Substance: AMANTADINE HYDROCHLORIDE
     Indication: PARKINSON^S DISEASE
     Dosage: 200 MG (MORNING) - 100 MG (NOON)
     Route: 048
  3. DUODOPA [Suspect]
     Active Substance: CARBIDOPA\LEVODOPA
  4. DIPEN [Concomitant]
     Indication: HYPERTENSION
     Route: 048
  5. CIPRALEX [Concomitant]
     Active Substance: ESCITALOPRAM OXALATE
     Indication: DEPRESSION
     Dosage: 10 MG (MORNING)
     Route: 048

REACTIONS (4)
  - Cardiopulmonary failure [Unknown]
  - Volvulus [Unknown]
  - Cardiac arrest [Fatal]
  - Multiple organ dysfunction syndrome [Unknown]
